FAERS Safety Report 6675531-4 (Version None)
Quarter: 2010Q2

REPORT INFORMATION
  Report Type: 
  Country: None (occurrence: None)
  Receive Date: 20100409
  Receipt Date: 20100312
  Transmission Date: 20101027
  Serious: Yes (Death, Other)
  Sender: FDA-Public Use
  Company Number: ZA-BRISTOL-MYERS SQUIBB COMPANY-13969910

PATIENT
  Sex: Female

DRUGS (1)
  1. STOCRIN TABS [Suspect]
     Indication: HIV INFECTION
     Route: 048

REACTIONS (6)
  - ABORTION INDUCED [None]
  - ABORTION SPONTANEOUS [None]
  - DEATH [None]
  - DEVELOPMENTAL DELAY [None]
  - LIVE BIRTH [None]
  - PREGNANCY [None]
